FAERS Safety Report 5909930-2 (Version None)
Quarter: 2008Q4

REPORT INFORMATION
  Report Type: 
  Country: None (occurrence: None)
  Receive Date: 20081006
  Receipt Date: 20081006
  Transmission Date: 20090506
  Serious: Yes (Hospitalization)
  Sender: FDA-Public Use
  Company Number: None

PATIENT
  Sex: Female
  Weight: 4.53 kg

DRUGS (12)
  1. DAUNORUBICIN HCL [Suspect]
     Dosage: 14 MG
     Dates: end: 20080810
  2. METHOTREXATE [Suspect]
     Dosage: 22.5 MG
     Dates: end: 20080825
  3. PEG-L- ASPARAGINASE (K-H) [Suspect]
     Dosage: 600 IU
  4. VINCRISTINE SULFATE [Suspect]
     Dosage: .52 MG
     Dates: end: 20080825
  5. CYCLOPHOSPHAMIDE [Suspect]
     Dosage: 240 MG
     Dates: end: 20080813
  6. CYTARABINE [Suspect]
     Dosage: 45 MG
     Dates: end: 20080825
  7. CIPROFLOXACIN [Concomitant]
  8. DAPSONE [Concomitant]
  9. FILGRASTIM (GCSF) [Concomitant]
  10. TYLENOL (CAPLET) [Concomitant]
  11. VITAMIN E [Concomitant]
  12. ACTIGALL [Concomitant]

REACTIONS (5)
  - ABDOMINAL DISTENSION [None]
  - ASCITES [None]
  - HEPATOMEGALY [None]
  - HEPATOTOXICITY [None]
  - RESPIRATORY DISTRESS [None]
